FAERS Safety Report 17835325 (Version 1)
Quarter: 2020Q2

REPORT INFORMATION
  Report Type: Report from Study
  Country: US (occurrence: US)
  Receive Date: 20200528
  Receipt Date: 20200528
  Transmission Date: 20200714
  Serious: Yes (Other)
  Sender: FDA-Public Use
  Company Number: US-EMD SERONO-9164577

PATIENT
  Sex: Female

DRUGS (1)
  1. MAVENCLAD [Suspect]
     Active Substance: CLADRIBINE
     Indication: MULTIPLE SCLEROSIS
     Dosage: YEAR ONE MONTH ONE THERAPY
     Route: 048
     Dates: start: 20200117

REACTIONS (11)
  - Seizure [Unknown]
  - Fall [Unknown]
  - Multiple sclerosis [Unknown]
  - Arthralgia [Unknown]
  - Muscular weakness [Unknown]
  - Skin abrasion [Unknown]
  - Anxiety [Unknown]
  - Nervousness [Unknown]
  - Neck pain [Unknown]
  - Musculoskeletal pain [Unknown]
  - Stress [Unknown]
